FAERS Safety Report 5623653-9 (Version None)
Quarter: 2008Q1

REPORT INFORMATION
  Report Type: 
  Country: None (occurrence: None)
  Receive Date: 20080212
  Receipt Date: 20080201
  Transmission Date: 20080703
  Serious: Yes (Other)
  Sender: FDA-Public Use
  Company Number: US-PFIZER INC-2008011725

PATIENT
  Sex: Female
  Weight: 63.5 kg

DRUGS (5)
  1. CHANTIX [Suspect]
     Indication: SMOKING CESSATION THERAPY
     Dates: start: 20070601, end: 20070801
  2. PROZAC [Concomitant]
     Indication: PANIC ATTACK
  3. TRAZODONE HCL [Concomitant]
  4. VITAMIN CAP [Concomitant]
  5. PAXIL [Concomitant]

REACTIONS (3)
  - BENIGN OVARIAN TUMOUR [None]
  - FEELING ABNORMAL [None]
  - NEGATIVE THOUGHTS [None]
